FAERS Safety Report 18911965 (Version 1)
Quarter: 2021Q1

REPORT INFORMATION
  Report Type: Spontaneous
  Country: CA (occurrence: CA)
  Receive Date: 20210219
  Receipt Date: 20210219
  Transmission Date: 20210420
  Serious: No
  Sender: FDA-Public Use
  Company Number: CA-RECORDATI RARE DISEASES-2107001

PATIENT
  Age: 37 Year
  Sex: Female

DRUGS (1)
  1. CYSTADROPS [Suspect]
     Active Substance: CYSTEAMINE HYDROCHLORIDE
     Indication: CORNEAL DEPOSITS

REACTIONS (1)
  - Product use issue [Unknown]
